FAERS Safety Report 5179393-6 (Version None)
Quarter: 2006Q4

REPORT INFORMATION
  Report Type: 
  Country: None (occurrence: None)
  Receive Date: 20061219
  Receipt Date: 20061128
  Transmission Date: 20070319
  Serious: Yes (Other)
  Sender: FDA-Public Use
  Company Number: CA-ROCHE-472865

PATIENT
  Age: 89 Year
  Sex: Female

DRUGS (4)
  1. TAMIFLU [Suspect]
     Indication: DRUG USE FOR UNKNOWN INDICATION
     Route: 048
  2. ASAPHEN [Suspect]
     Indication: DRUG USE FOR UNKNOWN INDICATION
     Dosage: GENERIC REPORTED AS ASAPHEN EC. FORM REPORTED AS SRT.
     Route: 065
  3. ATENOLOL [Concomitant]
  4. SYNTHROID [Concomitant]

REACTIONS (3)
  - EMBOLISM [None]
  - RECTAL HAEMORRHAGE [None]
  - THROMBOSIS [None]
